FAERS Safety Report 7027219-8 (Version None)
Quarter: 2010Q4

REPORT INFORMATION
  Report Type: 
  Country: None (occurrence: None)
  Receive Date: 20101004
  Receipt Date: 20100930
  Transmission Date: 20110411
  Serious: Yes (Other)
  Sender: FDA-Public Use
  Company Number: BG-BRISTOL-MYERS SQUIBB COMPANY-15246010

PATIENT
  Age: 38 Year
  Sex: Female
  Weight: 58 kg

DRUGS (1)
  1. ABILIFY [Suspect]
     Indication: SCHIZOPHRENIA
     Dosage: THERAPY DURATION:5YRS,9MONTHS,THERAPY:ONGOING
     Route: 048
     Dates: start: 20041201

REACTIONS (3)
  - ABORTION INDUCED [None]
  - GASTRITIS EROSIVE [None]
  - PREGNANCY [None]
